FAERS Safety Report 21494457 (Version 1)
Quarter: 2022Q4

REPORT INFORMATION
  Report Type: Spontaneous
  Country: FR (occurrence: FR)
  Receive Date: 20221021
  Receipt Date: 20221021
  Transmission Date: 20230112
  Serious: Yes (Hospitalization)
  Sender: FDA-Public Use
  Company Number: None

PATIENT
  Age: 82 Year
  Sex: Female
  Weight: 65 kg

DRUGS (1)
  1. KEYTRUDA [Suspect]
     Active Substance: PEMBROLIZUMAB
     Indication: Transitional cell carcinoma
     Dosage: UNK
     Route: 042
     Dates: start: 20210127

REACTIONS (2)
  - Myositis [Recovered/Resolved]
  - Ophthalmoplegia [Recovered/Resolved]

NARRATIVE: CASE EVENT DATE: 20210215
